FAERS Safety Report 7750288-4 (Version None)
Quarter: 2011Q3

REPORT INFORMATION
  Report Type: 
  Country: None (occurrence: None)
  Receive Date: 20110914
  Receipt Date: 20110901
  Transmission Date: 20111222
  Serious: Yes (Other)
  Sender: FDA-Public Use
  Company Number: US-ELI_LILLY_AND_COMPANY-US201004003439

PATIENT
  Sex: Female

DRUGS (4)
  1. FORTEO [Suspect]
     Dosage: 20 UG, DAILY (1/D)
  2. FORTEO [Suspect]
     Indication: OSTEOPOROSIS
     Dosage: 20 UG, DAILY (1/D)
     Dates: start: 20100326
  3. INSULIN [Concomitant]
     Indication: DIABETES MELLITUS
     Dosage: 4 D/F, DAILY (1/D)
  4. FORTEO [Suspect]
     Dosage: 20 UG, QD

REACTIONS (3)
  - ANXIETY [None]
  - BREAST CANCER [None]
  - SPINAL FRACTURE [None]
